FAERS Safety Report 11849483 (Version 4)
Quarter: 2016Q2

REPORT INFORMATION
  Report Type: Spontaneous
  Country: JP (occurrence: JP)
  Receive Date: 20151218
  Receipt Date: 20160406
  Transmission Date: 20160815
  Serious: Yes (Hospitalization)
  Sender: FDA-Public Use
  Company Number: JP-ELI_LILLY_AND_COMPANY-JP201512002487

PATIENT
  Age: 5 Year
  Sex: Male
  Weight: 16.7 kg

DRUGS (2)
  1. HUMATROPE [Suspect]
     Active Substance: SOMATROPIN
     Indication: GROWTH HORMONE DEFICIENCY
     Dosage: UNK
     Route: 058
     Dates: start: 20120107, end: 20140414
  2. HUMATROPE [Suspect]
     Active Substance: SOMATROPIN
     Dosage: UNK
     Route: 058
     Dates: start: 20140414, end: 20151104

REACTIONS (6)
  - Urticaria [Recovered/Resolved]
  - Nephrotic syndrome [Recovered/Resolved]
  - Erythema infectiosum [Recovered/Resolved]
  - Headache [Recovering/Resolving]
  - Purpura [Recovered/Resolved]
  - Pyrexia [Recovered/Resolved]

NARRATIVE: CASE EVENT DATE: 20150727
